FAERS Safety Report 7826149-9 (Version None)
Quarter: 2011Q4

REPORT INFORMATION
  Report Type: 
  Country: None (occurrence: None)
  Receive Date: 20111019
  Receipt Date: 20111010
  Transmission Date: 20120403
  Serious: Yes (Hospitalization, Disabling)
  Sender: FDA-Public Use
  Company Number: GB-BRISTOL-MYERS SQUIBB COMPANY-16165979

PATIENT
  Age: 65 Year
  Sex: Female

DRUGS (4)
  1. ATORVASTATIN [Concomitant]
     Route: 048
  2. PERINDOPRIL ERBUMINE [Concomitant]
     Route: 048
  3. AMLODIPINE [Concomitant]
     Route: 048
  4. MITOMYCIN [Suspect]
     Indication: BLADDER CANCER
     Dosage: INJ
     Route: 043
     Dates: start: 20050101

REACTIONS (3)
  - CYSTITIS [None]
  - CONTRACTED BLADDER [None]
  - URINARY TRACT INFECTION [None]
